FAERS Safety Report 17420200 (Version 3)
Quarter: 2022Q1

REPORT INFORMATION
  Report Type: Spontaneous
  Country: US (occurrence: US)
  Receive Date: 20200214
  Receipt Date: 20220314
  Transmission Date: 20220423
  Serious: Yes (Disabling)
  Sender: FDA-Public Use
  Company Number: US-TEVA-2020-US-1183391

PATIENT
  Age: 57 Year
  Sex: Female
  Weight: 108 kg

DRUGS (98)
  1. DOCETAXEL [Suspect]
     Active Substance: DOCETAXEL
     Indication: Triple negative breast cancer
     Dosage: EVERY 3 WEEKS FOR 4 CYCLES
     Route: 042
     Dates: start: 20130910, end: 20131119
  2. DOCETAXEL [Suspect]
     Active Substance: DOCETAXEL
     Indication: Breast cancer female
     Dosage: FOR 1 CYCLE
     Route: 042
     Dates: start: 20151208, end: 20151208
  3. DOCETAXEL [Suspect]
     Active Substance: DOCETAXEL
     Indication: Triple negative breast cancer
     Dosage: 75 MG/M2 IV CYCLE EVERY 3 WEEKS FOR 4 CYCLES
     Route: 042
     Dates: start: 20130910, end: 20131119
  4. DOCETAXEL [Suspect]
     Active Substance: DOCETAXEL
     Indication: Breast cancer female
     Dosage: 75 MG/M2 Q3 WEEKS 1 CYCLE
     Route: 042
     Dates: start: 20151208, end: 20151208
  5. ELLENCE [Suspect]
     Active Substance: EPIRUBICIN HYDROCHLORIDE
     Indication: Triple negative breast cancer
     Dosage: 75 MG/M2 IV EVERY 3 WEEKS FOR 3 CYCLES
     Route: 042
     Dates: start: 20131210, end: 20140121
  6. ELLENCE [Suspect]
     Active Substance: EPIRUBICIN HYDROCHLORIDE
     Indication: Breast cancer female
     Dosage: 75 MG/M2 IV EVERY 3 WEEKS FOR 3 CYCLES
     Route: 042
     Dates: start: 20150930, end: 20151110
  7. CYTOXAN [Suspect]
     Active Substance: CYCLOPHOSPHAMIDE
     Indication: Triple negative breast cancer
     Dosage: 600 MG/M2 IV FOR EVERY 3 WEEKS FOR 4 CYCLES
     Route: 042
     Dates: start: 20130910, end: 20131119
  8. CYTOXAN [Suspect]
     Active Substance: CYCLOPHOSPHAMIDE
     Indication: Breast cancer female
     Dosage: EVERY 3 WEEKS FOR 3 CYCLES
     Route: 042
     Dates: start: 20150930, end: 20151110
  9. EFUDEX [Concomitant]
     Active Substance: FLUOROURACIL
     Indication: Breast cancer female
     Dosage: CYCLE 1: 1302  MG OVER 10 MIN, CYCLE 2: 1290 MG, CYCLE 3: 1290 MG.
     Route: 042
     Dates: start: 20150930, end: 20151110
  10. ASPIRIN [Concomitant]
     Active Substance: ASPIRIN
     Route: 048
     Dates: start: 20130625, end: 20130702
  11. ASPIRIN [Concomitant]
     Active Substance: ASPIRIN
     Route: 048
     Dates: start: 20130703, end: 20130712
  12. ATORVASTATIN CALCIUM [Concomitant]
     Active Substance: ATORVASTATIN CALCIUM
     Route: 048
  13. BUPROPION HYDROCHLORIDE SR [Concomitant]
     Active Substance: BUPROPION HYDROCHLORIDE
     Dosage: SUSTAINED RELEASE
     Route: 048
  14. CITALOPRAM [Concomitant]
     Active Substance: CITALOPRAM HYDROBROMIDE
     Dosage: 20 MILLIGRAM DAILY;
     Route: 048
  15. CLONIDINE HYDROCHLORIDE [Concomitant]
     Active Substance: CLONIDINE HYDROCHLORIDE
     Dosage: .2 MILLIGRAM DAILY; EVENING
     Route: 048
  16. CLONIDINE HYDROCHLORIDE [Concomitant]
     Active Substance: CLONIDINE HYDROCHLORIDE
     Dosage: .1 MILLIGRAM DAILY;
     Route: 048
  17. HYDROCHLOROTHIAZIDE [Concomitant]
     Active Substance: HYDROCHLOROTHIAZIDE
     Route: 048
  18. LANTUS [Concomitant]
     Active Substance: INSULIN GLARGINE
     Dosage: 100 UNIT/ML AS PER INSULIN PROTOCOL
     Route: 058
  19. LISINOPRIL [Concomitant]
     Active Substance: LISINOPRIL
     Dosage: 40 MILLIGRAM DAILY;
     Route: 048
  20. METFORMIN HYDROCHLORIDE [Concomitant]
     Active Substance: METFORMIN HYDROCHLORIDE
     Dosage: MORNING AND EVENING MEALS
     Route: 048
  21. METOPROLOL TARTRATE [Concomitant]
     Active Substance: METOPROLOL TARTRATE
     Dosage: WITH MEALS
     Route: 048
  22. DEXAMETHASONE [Concomitant]
     Active Substance: DEXAMETHASONE
     Dosage: 4 MILLIGRAM DAILY; FOR 3 DAYS STARTING THE DAY BEFORE CHEMOTHERAPY
     Route: 048
     Dates: start: 20151207, end: 20151209
  23. PERCOCET [Concomitant]
     Active Substance: ACETAMINOPHEN\OXYCODONE HYDROCHLORIDE
     Indication: Pain
     Dosage: 5 MG OXYCODONE/ 325 MG PARACETAMOL AS NEEDED
     Route: 048
     Dates: start: 20150904, end: 20150904
  24. PROMETHAZINE HYDROCHLORIDE [Concomitant]
     Active Substance: PROMETHAZINE HYDROCHLORIDE
     Dosage: 1 TAB EVERY 4-6 HOURS AS NEEDED
     Route: 048
  25. PROMETHAZINE HYDROCHLORIDE [Concomitant]
     Active Substance: PROMETHAZINE HYDROCHLORIDE
     Dosage: 1 TAB EVERY 4-6 HOURS AS NEEDED
     Route: 048
     Dates: start: 20150930, end: 20150930
  26. ATIVAN [Concomitant]
     Active Substance: LORAZEPAM
     Route: 042
     Dates: start: 20130910
  27. ATIVAN [Concomitant]
     Active Substance: LORAZEPAM
     Dosage: OVER 5 MINUTES
     Route: 042
     Dates: start: 20131029
  28. ATIVAN [Concomitant]
     Active Substance: LORAZEPAM
     Dosage: OVER 10 MINUTES
     Route: 042
     Dates: start: 20131119
  29. ATIVAN [Concomitant]
     Active Substance: LORAZEPAM
     Dosage: OVER 5 MINUTES
     Route: 042
     Dates: start: 20131210
  30. ATIVAN [Concomitant]
     Active Substance: LORAZEPAM
     Dosage: OVER 10 MINUTES
     Route: 042
     Dates: start: 20131231
  31. ATIVAN [Concomitant]
     Active Substance: LORAZEPAM
     Dosage: OVER 2 MINUTES
     Route: 042
     Dates: start: 20140121
  32. ATIVAN [Concomitant]
     Active Substance: LORAZEPAM
     Dosage: OVER 2 MINUTES
     Route: 042
     Dates: start: 20140211
  33. ATIVAN [Concomitant]
     Active Substance: LORAZEPAM
     Dosage: OVER 2 MINUTES
     Route: 042
     Dates: start: 20150930
  34. ATIVAN [Concomitant]
     Active Substance: LORAZEPAM
     Dosage: OVER 2 MINUTES
     Route: 042
     Dates: start: 20151021
  35. DECADRON [Concomitant]
     Active Substance: DEXAMETHASONE
     Route: 042
     Dates: start: 20130910
  36. DECADRON [Concomitant]
     Active Substance: DEXAMETHASONE
     Dosage: OVER 20 MINUTES
     Route: 042
     Dates: start: 20131029
  37. DECADRON [Concomitant]
     Active Substance: DEXAMETHASONE
     Dosage: OVER 15 MINUTES
     Route: 042
     Dates: start: 20131119
  38. DECADRON [Concomitant]
     Active Substance: DEXAMETHASONE
     Dosage: OVER 20 MINUTES
     Route: 042
     Dates: start: 20131210
  39. DECADRON [Concomitant]
     Active Substance: DEXAMETHASONE
     Dosage: OVER 15 MINUTES
     Route: 042
     Dates: start: 20131231
  40. DECADRON [Concomitant]
     Active Substance: DEXAMETHASONE
     Dosage: OVER 15 MINUTES
     Route: 042
     Dates: start: 20140121
  41. DECADRON [Concomitant]
     Active Substance: DEXAMETHASONE
     Dosage: OVER 15 MINUTES
     Route: 042
     Dates: start: 20140211
  42. DECADRON [Concomitant]
     Active Substance: DEXAMETHASONE
     Dosage: OVER 15 MINUTES
     Route: 042
     Dates: start: 20150930
  43. DECADRON [Concomitant]
     Active Substance: DEXAMETHASONE
     Dosage: OVER 15 MINUTES
     Route: 042
     Dates: start: 20151021
  44. DECADRON [Concomitant]
     Active Substance: DEXAMETHASONE
     Dosage: OVER 15 MINUTES
     Route: 042
     Dates: start: 20151110
  45. ZOFRAN [Concomitant]
     Active Substance: ONDANSETRON HYDROCHLORIDE
     Route: 042
     Dates: start: 20130910
  46. ZOFRAN [Concomitant]
     Active Substance: ONDANSETRON HYDROCHLORIDE
     Dosage: OVER 20 MINUTES
     Route: 042
     Dates: start: 20131029
  47. ZOFRAN [Concomitant]
     Active Substance: ONDANSETRON HYDROCHLORIDE
     Dosage: OVER 15 MINUTES
     Route: 042
     Dates: start: 20131119
  48. ZOFRAN [Concomitant]
     Active Substance: ONDANSETRON HYDROCHLORIDE
     Dosage: OVER 20 MINUTES
     Route: 042
     Dates: start: 20131210
  49. ZOFRAN [Concomitant]
     Active Substance: ONDANSETRON HYDROCHLORIDE
     Dosage: OVER 15 MINUTES
     Route: 042
     Dates: start: 20131231
  50. ZOFRAN [Concomitant]
     Active Substance: ONDANSETRON HYDROCHLORIDE
     Dosage: OVER 15 MINUTES
     Route: 042
     Dates: start: 20140121
  51. ZOFRAN [Concomitant]
     Active Substance: ONDANSETRON HYDROCHLORIDE
     Dosage: OVER 15 MINUTES
     Route: 042
     Dates: start: 20140211
  52. ZOFRAN [Concomitant]
     Active Substance: ONDANSETRON HYDROCHLORIDE
     Dosage: OVER 15 MINUTES
     Route: 042
     Dates: start: 20150930
  53. ZOFRAN [Concomitant]
     Active Substance: ONDANSETRON HYDROCHLORIDE
     Dosage: OVER 15 MINUTES
     Route: 042
     Dates: start: 20151021
  54. ZOFRAN [Concomitant]
     Active Substance: ONDANSETRON HYDROCHLORIDE
     Dosage: OVER 15 MINUTES
     Route: 042
     Dates: start: 20151110
  55. NEULASTA [Concomitant]
     Active Substance: PEGFILGRASTIM
     Route: 058
     Dates: start: 20130911
  56. NEULASTA [Concomitant]
     Active Substance: PEGFILGRASTIM
     Route: 058
     Dates: start: 20131030
  57. NEULASTA [Concomitant]
     Active Substance: PEGFILGRASTIM
     Route: 058
     Dates: start: 20131211
  58. NEULASTA [Concomitant]
     Active Substance: PEGFILGRASTIM
     Route: 058
     Dates: start: 20140212
  59. NEULASTA [Concomitant]
     Active Substance: PEGFILGRASTIM
     Route: 058
     Dates: start: 20150930
  60. NEULASTA [Concomitant]
     Active Substance: PEGFILGRASTIM
     Route: 058
     Dates: start: 20151021
  61. NEULASTA [Concomitant]
     Active Substance: PEGFILGRASTIM
     Route: 058
     Dates: start: 20151110
  62. LEVAQUIN [Concomitant]
     Active Substance: LEVOFLOXACIN
     Route: 048
  63. NORVASC [Concomitant]
     Active Substance: AMLODIPINE BESYLATE
     Route: 048
  64. OMEPRAZOLE [Concomitant]
     Active Substance: OMEPRAZOLE
     Dosage: 20 MILLIGRAM DAILY; DELAYED RELEASE CAPSULE, BEFORE MEALS
     Route: 048
  65. TYLENOL [Concomitant]
     Active Substance: ACETAMINOPHEN
     Indication: Pain
     Dosage: AS NEEDED
     Route: 048
  66. TYLENOL [Concomitant]
     Active Substance: ACETAMINOPHEN
     Dosage: 2600 MILLIGRAM DAILY;
     Route: 048
     Dates: start: 20130709, end: 20130712
  67. PERI-COLACE [Concomitant]
     Active Substance: CASANTHRANOL\DOCUSATE SODIUM
     Dosage: 8.6 MG SENNOSIDES AND 50 MG DOCUSATE
     Route: 048
  68. PERI-COLACE [Concomitant]
     Active Substance: CASANTHRANOL\DOCUSATE SODIUM
     Dosage: 8.6 MG SENNOSIDES AND 50 MG DOCUSATE
     Route: 048
     Dates: start: 20131028
  69. PERI-COLACE [Concomitant]
     Active Substance: CASANTHRANOL\DOCUSATE SODIUM
     Dosage: 8.6 MG SENNOSIDES AND 50 MG DOCUSATE
     Route: 048
     Dates: start: 20150930
  70. MAGNESIUM SULFATE [Concomitant]
     Active Substance: MAGNESIUM SULFATE
     Dosage: OVER 2 HOURS
     Route: 042
     Dates: start: 20131029
  71. MAGNESIUM SULFATE [Concomitant]
     Active Substance: MAGNESIUM SULFATE
     Dosage: OVER 60 MINUTES
     Route: 042
     Dates: start: 20131119
  72. MAGNESIUM SULFATE [Concomitant]
     Active Substance: MAGNESIUM SULFATE
     Dosage: OVER 2 HOURS
     Route: 042
     Dates: start: 20140121
  73. MAGNESIUM SULFATE [Concomitant]
     Active Substance: MAGNESIUM SULFATE
     Dosage: OVER 2 HOURS
     Route: 042
     Dates: start: 20151230
  74. SIMVASTATIN [Concomitant]
     Active Substance: SIMVASTATIN
     Dosage: EVENING
     Route: 048
  75. EMEND [Concomitant]
     Active Substance: APREPITANT
     Dosage: OVER 30 MINUTES
     Route: 042
     Dates: start: 20131210
  76. EMEND [Concomitant]
     Active Substance: APREPITANT
     Dosage: OVER 30 MINUTES
     Route: 042
     Dates: start: 20131231
  77. EMEND [Concomitant]
     Active Substance: APREPITANT
     Dosage: OVER 30 MINUTES
     Route: 042
     Dates: start: 20140121
  78. EMEND [Concomitant]
     Active Substance: APREPITANT
     Dosage: OVER 30 MINUTES
     Route: 042
     Dates: start: 20150930
  79. EMEND [Concomitant]
     Active Substance: APREPITANT
     Dosage: OVER 30 MINUTES
     Route: 042
     Dates: start: 20151021
  80. EMEND [Concomitant]
     Active Substance: APREPITANT
     Dosage: OVER 30 MINUTES
     Route: 042
     Dates: start: 20151110
  81. EPIRUBICIN [Concomitant]
     Active Substance: EPIRUBICIN
     Dosage: OVER 10 MINUTES CYCLE 1: 75MG/M2 IV DAY 1 Q3 WEEKS
     Route: 042
     Dates: start: 20131210
  82. EPIRUBICIN [Concomitant]
     Active Substance: EPIRUBICIN
     Dosage: OVER 15 MINUTES CYCLE 2 75MG/M2 IV DAY 1 Q3 WEEKS
     Route: 042
     Dates: start: 20131231
  83. EPIRUBICIN [Concomitant]
     Active Substance: EPIRUBICIN
     Dosage: OVER 15 MINUTES CYCLE 3 75MG/M2 IV DAY 1 Q3 WEEKS
     Route: 042
     Dates: start: 20140121
  84. EPIRUBICIN [Concomitant]
     Active Substance: EPIRUBICIN
     Dosage: OVER 10 MINUTES
     Route: 042
     Dates: start: 20140211
  85. EPIRUBICIN [Concomitant]
     Active Substance: EPIRUBICIN
     Dosage: OVER 15 MINUTES
     Route: 042
     Dates: start: 20150930
  86. EPIRUBICIN [Concomitant]
     Active Substance: EPIRUBICIN
     Dosage: OVER 10 MINUTES
     Route: 042
     Dates: start: 20151021
  87. EPIRUBICIN [Concomitant]
     Active Substance: EPIRUBICIN
     Dosage: OVER 15 MINUTES
     Route: 042
     Dates: start: 20151110
  88. REGLAN [Concomitant]
     Active Substance: METOCLOPRAMIDE HYDROCHLORIDE
     Dosage: 1.25 MILLIGRAM DAILY; EVERY DAY 30 MINUTES BEFORE MEALS AND AT BEDTIME
     Route: 048
  89. LEVEMIR [Concomitant]
     Active Substance: INSULIN DETEMIR
     Dosage: 100 UNITS/ML
     Route: 058
  90. ALOXI [Concomitant]
     Active Substance: PALONOSETRON HYDROCHLORIDE
     Dosage: OVER 15 MINUTES
     Route: 042
     Dates: start: 20140121
  91. ALOXI [Concomitant]
     Active Substance: PALONOSETRON HYDROCHLORIDE
     Dosage: OVER 15 MINUTES
     Route: 042
     Dates: start: 20140211
  92. LACTULOSE [Concomitant]
     Active Substance: LACTULOSE
     Dosage: 10 GRAM/ 15 ML ORAL SOLUTION TAKE 15 MILLILITER
     Route: 048
     Dates: start: 20140210
  93. SILVADENE [Concomitant]
     Active Substance: SILVER SULFADIAZINE
     Dosage: .5 PERCENT DAILY; APPLY BY TOPICAL ROUTE 2 TIMES EVERY DAY A 1/16 INCH (1.5 MM) THICK LAYER TO ENTIR
     Route: 061
     Dates: start: 20140612
  94. ALENDRONATE [Concomitant]
     Active Substance: ALENDRONATE SODIUM
     Dosage: 10 MILLIGRAM DAILY; EVERY DAY IN MORNING, AT LEAST 30 MIN BEFORE FIRST FOOD BEVERAGE OR MEDICATION O
     Route: 048
  95. PROPYLTHIOURACIL [Concomitant]
     Active Substance: PROPYLTHIOURACIL
     Route: 048
  96. AMLODIPINE [Concomitant]
     Active Substance: AMLODIPINE BESYLATE
     Route: 048
  97. MILK OF MAGNESIA [Concomitant]
     Active Substance: MAGNESIUM HYDROXIDE
     Indication: Constipation
     Dosage: 400 MG/5 ML TAKE 30 MILLILITER EVERY DAY AS NEEDED
     Route: 048
  98. VOLTAREN [Concomitant]
     Active Substance: DICLOFENAC SODIUM
     Dosage: APPLY 2G TO THE AFFECTED AREA
     Route: 061
     Dates: start: 20151020

REACTIONS (8)
  - Alopecia areata [Not Recovered/Not Resolved]
  - Madarosis [Not Recovered/Not Resolved]
  - Hair colour changes [Not Recovered/Not Resolved]
  - Hair texture abnormal [Not Recovered/Not Resolved]
  - Nausea [Recovered/Resolved]
  - Diarrhoea [Recovered/Resolved]
  - Gastroenteritis [Recovered/Resolved]
  - Productive cough [Recovered/Resolved]

NARRATIVE: CASE EVENT DATE: 20130901
